FAERS Safety Report 19219664 (Version 4)
Quarter: 2021Q3

REPORT INFORMATION
  Report Type: Spontaneous
  Country: LB (occurrence: LB)
  Receive Date: 20210506
  Receipt Date: 20210802
  Transmission Date: 20211014
  Serious: Yes (Hospitalization, Other)
  Sender: FDA-Public Use
  Company Number: LB-REGENERON PHARMACEUTICALS, INC.-2021-48035

PATIENT

DRUGS (3)
  1. EYLEA [Suspect]
     Active Substance: AFLIBERCEPT
     Indication: DIABETIC RETINAL OEDEMA
     Dosage: UNK, EYE UNK; FIRST DOSE ADMINISTERED
     Dates: start: 20210428, end: 20210428
  2. EYLEA [Suspect]
     Active Substance: AFLIBERCEPT
     Indication: DIABETIC RETINAL OEDEMA
     Dosage: UNK
  3. AVASTIN [Concomitant]
     Active Substance: BEVACIZUMAB
     Indication: PRODUCT USED FOR UNKNOWN INDICATION
     Dosage: UNK
     Dates: start: 202103

REACTIONS (4)
  - Hypertension [Unknown]
  - Dizziness [Unknown]
  - Headache [Unknown]
  - Gait inability [Unknown]

NARRATIVE: CASE EVENT DATE: 20210428
